FAERS Safety Report 23367112 (Version 1)
Quarter: 2024Q1

REPORT INFORMATION
  Report Type: Spontaneous
  Country: US (occurrence: US)
  Receive Date: 20240104
  Receipt Date: 20240104
  Transmission Date: 20240410
  Serious: Yes (Hospitalization, Other)
  Sender: FDA-Public Use
  Company Number: US-ELI_LILLY_AND_COMPANY-US202401000510

PATIENT
  Age: 46 Year

DRUGS (1)
  1. MOUNJARO [Suspect]
     Active Substance: TIRZEPATIDE
     Indication: Product used for unknown indication
     Dosage: UNK UNK, UNKNOWN
     Route: 065
     Dates: start: 202207, end: 202211

REACTIONS (5)
  - Renal failure [Unknown]
  - Vomiting [Unknown]
  - Dehydration [Unknown]
  - Impaired gastric emptying [Unknown]
  - Diarrhoea [Unknown]
